FAERS Safety Report 6683360-0 (Version None)
Quarter: 2010Q2

REPORT INFORMATION
  Report Type: 
  Country: None (occurrence: None)
  Receive Date: 20100415
  Receipt Date: 20100408
  Transmission Date: 20101027
  Serious: Yes (Other)
  Sender: FDA-Public Use
  Company Number: US-AMGEN-QUU404411

PATIENT
  Sex: Female

DRUGS (9)
  1. NEUPOGEN [Suspect]
     Indication: CHEMOTHERAPY
  2. ADRIAMYCIN PFS [Concomitant]
  3. CYTOXAN [Concomitant]
  4. TAMOXIFEN CITRATE [Concomitant]
  5. FEMARA [Concomitant]
  6. AROMASIN [Concomitant]
  7. SYNTHROID [Concomitant]
  8. INSULIN [Concomitant]
  9. CYMBALTA [Concomitant]

REACTIONS (1)
  - SARCOMA OF SKIN [None]
